FAERS Safety Report 7557487-5 (Version None)
Quarter: 2011Q2

REPORT INFORMATION
  Report Type: 
  Country: None (occurrence: None)
  Receive Date: 20110620
  Receipt Date: 20110603
  Transmission Date: 20111010
  Serious: No
  Sender: FDA-Public Use
  Company Number: US-B.I. PHARMACEUTICALS,INC./RIDGEFIELD-2011-BP-14701BP

PATIENT
  Age: 62 Year
  Sex: Female

DRUGS (4)
  1. VIT D [Concomitant]
     Indication: PROPHYLAXIS
     Route: 048
  2. COQ10 [Concomitant]
     Indication: PROPHYLAXIS
     Route: 048
  3. MULTI-VITAMIN [Concomitant]
     Indication: PROPHYLAXIS
     Route: 048
  4. SPIRIVA [Suspect]
     Indication: CHRONIC OBSTRUCTIVE PULMONARY DISEASE
     Dosage: 18 MCG
     Route: 055
     Dates: start: 20110301

REACTIONS (3)
  - NAUSEA [None]
  - VISION BLURRED [None]
  - DIZZINESS [None]
